FAERS Safety Report 10355457 (Version 1)
Quarter: 2014Q3

REPORT INFORMATION
  Report Type: Spontaneous
  Country: US (occurrence: US)
  Receive Date: 20140731
  Receipt Date: 20140731
  Transmission Date: 20150326
  Serious: No
  Sender: FDA-Public Use
  Company Number: US-TEVA-492597USA

PATIENT
  Sex: Male

DRUGS (1)
  1. ACTIQ [Suspect]
     Active Substance: FENTANYL CITRATE
     Route: 048

REACTIONS (2)
  - Drug ineffective [Unknown]
  - Drug administration error [Unknown]

NARRATIVE: CASE EVENT DATE: 20140702
